FAERS Safety Report 5921086-9 (Version None)
Quarter: 2008Q4

REPORT INFORMATION
  Report Type: 
  Country: None (occurrence: None)
  Receive Date: 20081016
  Receipt Date: 20081010
  Transmission Date: 20090506
  Serious: Yes (Hospitalization)
  Sender: FDA-Public Use
  Company Number: IT-AVENTIS-200819575GDDC

PATIENT
  Age: 55 Year
  Sex: Male
  Weight: 98 kg

DRUGS (4)
  1. GLIMEPIRIDE [Suspect]
     Indication: TYPE 2 DIABETES MELLITUS
     Dosage: DOSE: UNK
     Route: 048
     Dates: start: 20060313, end: 20070424
  2. METFORMIN [Concomitant]
     Dosage: DOSE: UNK
  3. IRBESARTAN [Concomitant]
     Dosage: DOSE: UNK
  4. SIMVASTATIN [Concomitant]
     Dosage: DOSE: UNK

REACTIONS (6)
  - ABDOMINAL PAIN [None]
  - BLOOD AMYLASE INCREASED [None]
  - CHOLECYSTECTOMY [None]
  - CHOLELITHIASIS [None]
  - LIPASE INCREASED [None]
  - PANCREATITIS ACUTE [None]
